FAERS Safety Report 10646771 (Version 5)
Quarter: 2015Q1

REPORT INFORMATION
  Report Type: Report from Study
  Country: AU (occurrence: AU)
  Receive Date: 20141211
  Receipt Date: 20150219
  Transmission Date: 20150720
  Serious: Yes (Other)
  Sender: FDA-Public Use
  Company Number: PHHY2014AU155227

PATIENT
  Age: 22 Year
  Sex: Male

DRUGS (3)
  1. SERETIDE [Concomitant]
     Active Substance: FLUTICASONE FUROATE\SALMETEROL XINAFOATE
     Indication: PRODUCT USED FOR UNKNOWN INDICATION
     Route: 065
  2. SERTRALINE [Concomitant]
     Active Substance: SERTRALINE HYDROCHLORIDE
     Indication: PRODUCT USED FOR UNKNOWN INDICATION
     Route: 065
  3. CLOZARIL [Suspect]
     Active Substance: CLOZAPINE
     Indication: SCHIZOPHRENIA
     Dosage: 300 MG, QD (NOCTE)
     Route: 048
     Dates: start: 20130927, end: 20141105

REACTIONS (12)
  - Blood pressure increased [Not Recovered/Not Resolved]
  - Blood glucose increased [Recovering/Resolving]
  - Blood triglycerides increased [Recovering/Resolving]
  - Blood creatine phosphokinase increased [Recovering/Resolving]
  - Heart rate increased [Not Recovered/Not Resolved]
  - Diastolic dysfunction [Not Recovered/Not Resolved]
  - Blood cholesterol increased [Recovering/Resolving]
  - Cardiomyopathy [Unknown]
  - Systolic dysfunction [Not Recovered/Not Resolved]
  - Ejection fraction decreased [Not Recovered/Not Resolved]
  - Blood uric acid increased [Recovering/Resolving]
  - Eosinophil count decreased [Recovering/Resolving]

NARRATIVE: CASE EVENT DATE: 20140812
